FAERS Safety Report 8367600-8 (Version None)
Quarter: 2012Q2

REPORT INFORMATION
  Report Type: 
  Country: None (occurrence: None)
  Receive Date: 20120517
  Receipt Date: 20120508
  Transmission Date: 20120825
  Serious: Yes (Other)
  Sender: FDA-Public Use
  Company Number: US-ABBOTT-12P-163-0933897-00

PATIENT
  Sex: Female
  Weight: 118.04 kg

DRUGS (7)
  1. LUNA SOLOSTAR [Concomitant]
     Indication: DIABETES MELLITUS
  2. XANAX [Concomitant]
     Indication: ANXIETY
  3. LEXAPRO [Concomitant]
     Indication: DEPRESSION
  4. ZOCOR [Concomitant]
     Indication: BLOOD CHOLESTEROL
  5. LUPRON DEPOT [Suspect]
     Indication: UTERINE LEIOMYOMA
     Route: 030
     Dates: start: 20111101
  6. LUNESTA [Concomitant]
     Indication: INSOMNIA
  7. HUMALOG [Concomitant]
     Indication: DIABETES MELLITUS

REACTIONS (3)
  - CATARACT [None]
  - VISUAL IMPAIRMENT [None]
  - AMNESIA [None]
